FAERS Safety Report 9668564 (Version 1)
Quarter: 2013Q4

REPORT INFORMATION
  Report Type: Spontaneous
  Country: US (occurrence: US)
  Receive Date: 20131105
  Receipt Date: 20131105
  Transmission Date: 20140711
  Serious: Yes (Death, Hospitalization, Other)
  Sender: FDA-Public Use
  Company Number: US-009507513-1310USA012447

PATIENT
  Sex: Male

DRUGS (5)
  1. TEMODAR [Suspect]
     Indication: GLIOBLASTOMA
     Dosage: 140 MG/ONCE DAILY
     Route: 048
     Dates: start: 20130817, end: 20130829
  2. BACTRIM [Concomitant]
     Dosage: DOSE UNKNOWN / THREE TIMES WEEKLY
  3. HEXADROL TABLETS [Concomitant]
     Dosage: UNK
  4. REGLAN [Concomitant]
     Dosage: UNK
  5. THERAPEUTIC RADIOPHARMACEUTICAL (UNSPECIFIED) [Concomitant]
     Dosage: UNK
     Dates: start: 20130808

REACTIONS (3)
  - Thrombosis [Fatal]
  - Blood count abnormal [Fatal]
  - Pulmonary embolism [Fatal]
